FAERS Safety Report 8462874-7 (Version None)
Quarter: 2012Q2

REPORT INFORMATION
  Report Type: 
  Country: None (occurrence: None)
  Receive Date: 20120625
  Receipt Date: 20120613
  Transmission Date: 20120825
  Serious: Yes (Hospitalization, Other)
  Sender: FDA-Public Use
  Company Number: JP-ROCHE-1047194

PATIENT
  Age: 81 Year
  Sex: Female
  Weight: 44 kg

DRUGS (15)
  1. FLUOROURACIL [Concomitant]
     Indication: RECTAL CANCER METASTATIC
     Dosage: DOSAGE IS UNCERTAIN.
     Route: 041
  2. CEFAZOLIN SODIUM [Concomitant]
     Dosage: DOSAGE IS UNCERTAIN.
     Route: 048
  3. MAGMITT [Concomitant]
     Dosage: DOSAGE IS UNCERTAIN.
     Route: 048
  4. FAMOTIDINE D [Concomitant]
     Dosage: DOSAGE IS UNCERTAIN.
     Route: 048
  5. FLUOROURACIL [Concomitant]
     Dosage: DOSAGE IS UNCERTAIN.
     Route: 040
  6. OXALIPLATIN [Concomitant]
     Indication: RECTAL CANCER METASTATIC
     Dosage: DOSAGE IS UNCERTAIN.
     Route: 041
  7. FERROUS CITRATE [Concomitant]
     Dosage: DOSAGE IS UNCERTAIN.
     Route: 048
  8. LOXOPROFEN SODIUM [Concomitant]
     Dosage: DOSAGE IS UNCERTAIN.
     Route: 048
  9. AVASTIN [Suspect]
     Route: 041
     Dates: start: 20110927, end: 20110927
  10. AVASTIN [Suspect]
     Route: 041
     Dates: start: 20111011, end: 20111011
  11. AVASTIN [Suspect]
     Indication: RECTAL CANCER METASTATIC
     Route: 041
     Dates: start: 20110913, end: 20110913
  12. AVASTIN [Suspect]
     Route: 041
     Dates: start: 20111115, end: 20111115
  13. LEVOLEUCOVORIN CALCIUM [Concomitant]
     Indication: RECTAL CANCER METASTATIC
     Dosage: DOSAGE IS UNCERTAIN.
     Route: 041
  14. ENALAPRIL MALEATE [Concomitant]
     Dosage: DOSAGE IS UNCERTAIN.
     Route: 048
  15. ADALAT [Concomitant]
     Dosage: DOSAGE IS UNCERTAIN.
     Route: 048

REACTIONS (3)
  - EPILEPSY [None]
  - GASTROINTESTINAL PERFORATION [None]
  - INFECTION [None]
